FAERS Safety Report 8061758-6 (Version None)
Quarter: 2012Q1

REPORT INFORMATION
  Report Type: 
  Country: None (occurrence: None)
  Receive Date: 20120123
  Receipt Date: 20120111
  Transmission Date: 20120608
  Serious: No
  Sender: FDA-Public Use
  Company Number: US-BIOGENIDEC-2012BI001409

PATIENT
  Sex: Female

DRUGS (3)
  1. IBUPROFEN [Concomitant]
     Indication: PREMEDICATION
  2. AVONEX [Suspect]
     Indication: MULTIPLE SCLEROSIS
     Route: 030
     Dates: start: 20110831
  3. GABAPENTIN [Concomitant]
     Indication: NEURALGIA

REACTIONS (5)
  - INJECTION SITE PAIN [None]
  - INJURY ASSOCIATED WITH DEVICE [None]
  - PAIN [None]
  - ANXIETY [None]
  - ARTHRALGIA [None]
